FAERS Safety Report 5633327-6 (Version None)
Quarter: 2008Q1

REPORT INFORMATION
  Report Type: 
  Country: None (occurrence: None)
  Receive Date: 20080221
  Receipt Date: 20080212
  Transmission Date: 20080703
  Serious: Yes (Death, Hospitalization)
  Sender: FDA-Public Use
  Company Number: US-JNJFOC-20071201752

PATIENT
  Sex: Male

DRUGS (1)
  1. REMICADE [Suspect]
     Indication: RHEUMATOID ARTHRITIS
     Dosage: TOTAL OF 3 INFUSIONS
     Route: 042

REACTIONS (3)
  - BACTERIAL SEPSIS [None]
  - COCCIDIOIDOMYCOSIS [None]
  - IDIOPATHIC THROMBOCYTOPENIC PURPURA [None]
